FAERS Safety Report 9316203 (Version 3)
Quarter: 2013Q4

REPORT INFORMATION
  Report Type: Spontaneous
  Country: GB (occurrence: GB)
  Receive Date: 20130530
  Receipt Date: 20131030
  Transmission Date: 20140711
  Serious: Yes (Other)
  Sender: FDA-Public Use
  Company Number: PHFR2013GB003017

PATIENT
  Age: 56 Year
  Sex: Male

DRUGS (10)
  1. GILENYA [Suspect]
     Indication: MULTIPLE SCLEROSIS
     Dosage: 0.5 MG, QD
     Route: 048
     Dates: start: 201112
  2. GILENYA [Suspect]
     Dosage: 0.5 MG, QD
     Route: 048
     Dates: start: 201302
  3. AMLODIPINE [Suspect]
     Indication: HYPERTENSION
     Dosage: 5 MG, UNK
     Route: 048
     Dates: start: 201211
  4. LANSOPRAZOLE [Suspect]
  5. DOMPERIDONE [Concomitant]
  6. TADALAFIL [Concomitant]
  7. BACLOFEN [Concomitant]
  8. CITALOPRAM [Concomitant]
  9. LORATADINE [Concomitant]
  10. SIMVASTATIN [Concomitant]

REACTIONS (3)
  - Gynaecomastia [Not Recovered/Not Resolved]
  - Breast pain [Unknown]
  - Breast swelling [Unknown]
